FAERS Safety Report 9684396 (Version 1)
Quarter: 2013Q4

REPORT INFORMATION
  Report Type: Spontaneous
  Country: US (occurrence: US)
  Receive Date: 20131112
  Receipt Date: 20131112
  Transmission Date: 20140711
  Serious: No
  Sender: FDA-Public Use
  Company Number: US-PFIZER INC-2013319044

PATIENT
  Age: 43 Year
  Sex: Female
  Weight: 68.03 kg

DRUGS (6)
  1. CHANTIX [Suspect]
     Indication: SMOKING CESSATION THERAPY
     Dosage: UNK
  2. CHANTIX [Interacting]
     Dosage: UNK
  3. CHANTIX [Interacting]
     Dosage: UNK
     Dates: start: 2013
  4. LEVOTHYROXINE SODIUM [Interacting]
     Dosage: UNK
  5. DOXYCYCLINE CALCIUM [Interacting]
     Dosage: UNK
  6. ALPRAZOLAM [Interacting]
     Dosage: UNK

REACTIONS (3)
  - Drug interaction [Unknown]
  - Nausea [Unknown]
  - Restlessness [Unknown]
